FAERS Safety Report 6760941-7 (Version None)
Quarter: 2010Q2

REPORT INFORMATION
  Report Type: 
  Country: None (occurrence: None)
  Receive Date: 20100604
  Receipt Date: 20100527
  Transmission Date: 20101027
  Serious: Yes (Other)
  Sender: FDA-Public Use
  Company Number: 2010-1662

PATIENT
  Age: 67 Year
  Sex: Female
  Weight: 64.4 kg

DRUGS (7)
  1. DYSPORT [Suspect]
     Indication: OFF LABEL USE
     Dosage: 100 UNITS (100 UNITS, SINGLE CYCLE), INTRAMUSCULAR
     Route: 030
     Dates: start: 20100429, end: 20100429
  2. DYSPORT [Suspect]
     Indication: SKIN WRINKLING
     Dosage: 100 UNITS (100 UNITS, SINGLE CYCLE), INTRAMUSCULAR
     Route: 030
     Dates: start: 20100429, end: 20100429
  3. CLONIDINE [Concomitant]
  4. DILTIAZEM [Concomitant]
  5. CARVEDILOL [Concomitant]
  6. ZOCOR [Concomitant]
  7. AMBIEN [Concomitant]

REACTIONS (8)
  - CEREBROVASCULAR ACCIDENT [None]
  - DRY MOUTH [None]
  - DYSPHONIA [None]
  - FEEDING DISORDER [None]
  - HYPERTENSION [None]
  - LIP SWELLING [None]
  - SWELLING [None]
  - SWOLLEN TONGUE [None]
